FAERS Safety Report 26132011 (Version 2)
Quarter: 2025Q4

REPORT INFORMATION
  Report Type: Report from Study
  Country: EU (occurrence: EU)
  Receive Date: 20251208
  Receipt Date: 20251225
  Transmission Date: 20260118
  Serious: Yes (Hospitalization)
  Sender: ABBVIE
  Company Number: EU-ABBVIE-6360652

PATIENT
  Age: 64 Year
  Sex: Male

DRUGS (4)
  1. FOSCARBIDOPA\FOSLEVODOPA [Suspect]
     Active Substance: FOSCARBIDOPA\FOSLEVODOPA
     Indication: Parkinson^s disease
     Dosage: DOSE INCREASED?CRN: 0.18 ML/H, CR: 0.21 ML/H, CRH: 0.24 ML/H, ED: 0.15 ML
     Route: 058
     Dates: start: 20250704, end: 2025
  2. FOSCARBIDOPA\FOSLEVODOPA [Suspect]
     Active Substance: FOSCARBIDOPA\FOSLEVODOPA
     Route: 058
     Dates: start: 20250702, end: 20250704
  3. FOSCARBIDOPA\FOSLEVODOPA [Suspect]
     Active Substance: FOSCARBIDOPA\FOSLEVODOPA
     Dosage: CRN 0.21 ML/H; CR 0.24 ML/H; CRH 0.27 ML/H; ED 0.15 ML
     Route: 058
     Dates: start: 20250630, end: 2025
  4. FOSCARBIDOPA\FOSLEVODOPA [Suspect]
     Active Substance: FOSCARBIDOPA\FOSLEVODOPA
     Dosage: CRN 0.24 ML/H; CR 0.26 ML/H; CRH 0.29 ML/H; ED 0.15 ML
     Route: 058
     Dates: start: 2025

REACTIONS (7)
  - Acute kidney injury [Recovering/Resolving]
  - Product prescribing error [Recovered/Resolved]
  - Fall [Recovered/Resolved]
  - On and off phenomenon [Unknown]
  - Product prescribing error [Unknown]
  - Balance disorder [Not Recovered/Not Resolved]
  - Hypotension [Not Recovered/Not Resolved]

NARRATIVE: CASE EVENT DATE: 20250101
